FAERS Safety Report 5262253-X (Version None)
Quarter: 2007Q1

REPORT INFORMATION
  Report Type: 
  Country: None (occurrence: None)
  Receive Date: 20070308
  Receipt Date: 20070308
  Transmission Date: 20070707
  Serious: Yes (Hospitalization)
  Sender: FDA-Public Use
  Company Number: None

PATIENT
  Sex: Male
  Weight: 72.1219 kg

DRUGS (6)
  1. THALIDOMIDE [Suspect]
     Indication: PROSTATE CANCER METASTATIC
     Dosage: 100 MG QD PO
     Route: 048
     Dates: start: 20070117, end: 20070307
  2. XELODA [Suspect]
     Indication: PROSTATE CANCER METASTATIC
     Dosage: 2000 MG QD PO
     Route: 048
     Dates: start: 20070124, end: 20070307
  3. FLOMAX [Concomitant]
  4. COUMADIN [Concomitant]
  5. LACTULOSE [Concomitant]
  6. PERCOCET [Concomitant]

REACTIONS (3)
  - ANOREXIA [None]
  - ASTHENIA [None]
  - NAUSEA [None]
